FAERS Safety Report 17628771 (Version 2)
Quarter: 2021Q1

REPORT INFORMATION
  Report Type: Report from Study
  Country: CN (occurrence: CN)
  Receive Date: 20200406
  Receipt Date: 20210307
  Transmission Date: 20210419
  Serious: Yes (Other)
  Sender: FDA-Public Use
  Company Number: CN-SUN PHARMACEUTICAL INDUSTRIES LTD-2020R1-242347

PATIENT
  Age: 28 Year
  Sex: Female

DRUGS (2)
  1. DOXORUBICIN [Suspect]
     Active Substance: DOXORUBICIN
     Indication: ANGIOSARCOMA
     Dosage: 37.5 MG/M2 PER DAY ON DAYS 2 AND 3 EVERY 21 DAYS
     Route: 042
  2. CAMRELIZUMAB [Suspect]
     Active Substance: CAMRELIZUMAB
     Indication: ANGIOSARCOMA
     Dosage: DAY 1 EVERY 21 DAYS
     Route: 042

REACTIONS (1)
  - Therapy partial responder [Unknown]
